FAERS Safety Report 24458586 (Version 1)
Quarter: 2024Q4

REPORT INFORMATION
  Report Type: Report from Study
  Country: US (occurrence: US)
  Receive Date: 20241018
  Receipt Date: 20241018
  Transmission Date: 20250115
  Serious: No
  Sender: ROCHE
  Company Number: US-ROCHE-3521480

PATIENT
  Age: 23 Year
  Sex: Female

DRUGS (5)
  1. RITUXAN [Suspect]
     Active Substance: RITUXIMAB
     Indication: Myasthenia gravis
     Dosage: 2 DOSES, THEN MAINTENANCE EVERY 6 MONTHS, REFILLS 1 YEAR
     Route: 065
  2. NORETHINDRONE [Concomitant]
     Active Substance: NORETHINDRONE
     Dosage: 1 MG- 10 MCG
  3. PREDNISONE [Concomitant]
     Active Substance: PREDNISONE
  4. PYRIDOSTIGMINE [Concomitant]
     Active Substance: PYRIDOSTIGMINE
     Dosage: 180 MG, 60 MG
  5. RITUXIMAB [Concomitant]
     Active Substance: RITUXIMAB
     Route: 042

REACTIONS (2)
  - Off label use [Unknown]
  - No adverse event [Unknown]
